FAERS Safety Report 24241584 (Version 2)
Quarter: 2024Q4

REPORT INFORMATION
  Report Type: Spontaneous
  Country: US (occurrence: US)
  Receive Date: 20240823
  Receipt Date: 20241111
  Transmission Date: 20250114
  Serious: No
  Sender: Kenvue
  Company Number: US-JNJFOC-20240849622

PATIENT

DRUGS (1)
  1. ZYRTEC [Suspect]
     Active Substance: CETIRIZINE HYDROCHLORIDE
     Indication: Hypersensitivity
     Dosage: OVER A DECADE
     Route: 065

REACTIONS (1)
  - Drug ineffective [Unknown]
